FAERS Safety Report 19267526 (Version 1)
Quarter: 2021Q2

REPORT INFORMATION
  Report Type: Report from Study
  Country: US (occurrence: US)
  Receive Date: 20210517
  Receipt Date: 20210517
  Transmission Date: 20210717
  Serious: Yes (Death)
  Sender: FDA-Public Use
  Company Number: US-ASTRAZENECA-2021A433728

PATIENT
  Age: 30233 Day
  Sex: Male

DRUGS (7)
  1. CRESTOR [Suspect]
     Active Substance: ROSUVASTATIN CALCIUM
     Dosage: UNKNOWN
     Route: 048
  2. TRICOR [Concomitant]
     Active Substance: FENOFIBRATE
  3. LUPRON [Concomitant]
     Active Substance: LEUPROLIDE ACETATE
  4. MIDODRINE [Concomitant]
     Active Substance: MIDODRINE
  5. LYNPARZA [Suspect]
     Active Substance: OLAPARIB
     Indication: PROSTATE CANCER METASTATIC
     Route: 048
     Dates: start: 20200703
  6. PROLIA [Concomitant]
     Active Substance: DENOSUMAB
  7. ACIPHEX [Concomitant]
     Active Substance: RABEPRAZOLE SODIUM

REACTIONS (1)
  - Death [Fatal]

NARRATIVE: CASE EVENT DATE: 20210512
